FAERS Safety Report 6555640-0 (Version None)
Quarter: 2010Q1

REPORT INFORMATION
  Report Type: 
  Country: None (occurrence: None)
  Receive Date: 20100128
  Receipt Date: 20100114
  Transmission Date: 20100710
  Serious: Yes (Other)
  Sender: FDA-Public Use
  Company Number: PHEH2008US06155

PATIENT
  Sex: Female
  Weight: 57.143 kg

DRUGS (24)
  1. ESTRADERM [Suspect]
     Dosage: UNK
     Dates: start: 19880101, end: 20000101
  2. PREMPRO [Suspect]
     Dosage: UNK
     Dates: start: 19880101, end: 20000101
  3. PREMARIN [Suspect]
     Dosage: 0.625 MG, QD
     Dates: start: 19880101, end: 20000101
  4. PROVERA [Suspect]
     Dosage: 2.5 MG, QD
     Dates: start: 19880101, end: 20000101
  5. NORVASC [Concomitant]
     Dosage: 10MCG QD
  6. NORVASC [Concomitant]
     Dosage: 20 MG, QD
  7. ALEVE [Concomitant]
     Dosage: ONE Q 12 HRS
  8. ASACOL [Concomitant]
     Dosage: 400MG BID
  9. ZOCOR [Concomitant]
     Dosage: 40MG QD
  10. FOLIC ACID [Concomitant]
     Dosage: 400MG QD
  11. ASPIRIN [Concomitant]
     Dosage: 81MG QD
  12. ZESTORETIC [Concomitant]
     Dosage: 20/25MG TAB QPM
  13. CALCIUM CARBONATE [Concomitant]
     Dosage: 1500MG QD
  14. COQ10 [Concomitant]
     Dosage: 100MG QD
  15. TAMOXIFEN CITRATE [Concomitant]
  16. ADRIAMYCIN PFS [Concomitant]
     Dosage: UNK
     Dates: start: 20050125
  17. CYTOXAN [Concomitant]
     Dosage: UNK
     Dates: start: 20050125
  18. TESTIM [Concomitant]
     Dosage: 50MG/5GRAMS QD
     Dates: start: 20070808
  19. VENLAFAXINE [Concomitant]
     Dosage: 37.5MG QD
  20. TENORMIN [Concomitant]
  21. MIACALCIN [Concomitant]
     Indication: OSTEOPOROSIS PROPHYLAXIS
  22. AROMASIN [Concomitant]
  23. ACIPHEX [Concomitant]
  24. PREDNISONE TAB [Concomitant]
     Dosage: 10 MG, UNK

REACTIONS (20)
  - ABSCESS DRAINAGE [None]
  - ANHEDONIA [None]
  - ANXIETY [None]
  - BREAST CANCER [None]
  - BREAST LUMP REMOVAL [None]
  - CHOLELITHIASIS [None]
  - COLITIS [None]
  - DIARRHOEA [None]
  - ELECTROCARDIOGRAM ABNORMAL [None]
  - EMOTIONAL DISTRESS [None]
  - HOT FLUSH [None]
  - INFECTION [None]
  - LIBIDO DECREASED [None]
  - LIVER FUNCTION TEST ABNORMAL [None]
  - LYMPHADENECTOMY [None]
  - MASTECTOMY [None]
  - OSTEOPOROSIS [None]
  - PAIN [None]
  - SEBORRHOEIC KERATOSIS [None]
  - TACHYCARDIA [None]
